FAERS Safety Report 21656334 (Version 3)
Quarter: 2024Q1

REPORT INFORMATION
  Report Type: Spontaneous
  Country: US (occurrence: US)
  Receive Date: 20221129
  Receipt Date: 20240125
  Transmission Date: 20240410
  Serious: No
  Sender: FDA-Public Use
  Company Number: US-PFIZER INC-PV202200111487

PATIENT
  Age: 71 Year
  Sex: Female

DRUGS (8)
  1. IBRANCE [Suspect]
     Active Substance: PALBOCICLIB
     Dosage: X 21 DAYS
     Route: 048
     Dates: start: 20210804
  2. IBRANCE [Suspect]
     Active Substance: PALBOCICLIB
     Dosage: DAILY FOR 21 DAYS
     Route: 048
     Dates: start: 20211014
  3. ANASTROZOLE [Concomitant]
     Active Substance: ANASTROZOLE
  4. PROCHLORPERAZINE [Concomitant]
     Active Substance: PROCHLORPERAZINE
  5. ZOFRAN [Concomitant]
     Active Substance: ONDANSETRON HYDROCHLORIDE
  6. OMEPRAZOLE [Concomitant]
     Active Substance: OMEPRAZOLE
  7. IRON [Concomitant]
     Active Substance: IRON
     Dosage: HIGH POTENCY TABLETS
  8. IBRANCE [Concomitant]
     Active Substance: PALBOCICLIB

REACTIONS (2)
  - Sinusitis [Unknown]
  - COVID-19 [Recovered/Resolved]
